FAERS Safety Report 4653473-3 (Version None)
Quarter: 2005Q2

REPORT INFORMATION
  Report Type: 
  Country: None (occurrence: None)
  Receive Date: 20050505
  Receipt Date: 20050422
  Transmission Date: 20051028
  Serious: Yes (Hospitalization)
  Sender: FDA-Public Use
  Company Number: SE-GLAXOSMITHKLINE-B0379159A

PATIENT
  Age: 50 Year
  Sex: Female

DRUGS (7)
  1. LAMICTAL [Suspect]
     Indication: DEPRESSION
     Route: 065
     Dates: start: 20040618
  2. STILNOCT [Concomitant]
  3. XANOR [Concomitant]
     Dosage: 1MG FOUR TIMES PER DAY
  4. SAROTEN [Concomitant]
  5. LITHIUM [Concomitant]
  6. CLOMIPRAMINE [Concomitant]
     Dates: end: 20040801
  7. ZYPREXA [Concomitant]
     Dates: end: 20040801

REACTIONS (2)
  - BIPOLAR I DISORDER [None]
  - GRANDIOSITY [None]
